FAERS Safety Report 7433323-2 (Version None)
Quarter: 2011Q2

REPORT INFORMATION
  Report Type: 
  Country: None (occurrence: None)
  Receive Date: 20110422
  Receipt Date: 20110413
  Transmission Date: 20111010
  Serious: Yes (Other)
  Sender: FDA-Public Use
  Company Number: US-ELI_LILLY_AND_COMPANY-US201104004265

PATIENT
  Sex: Female

DRUGS (2)
  1. FORTEO [Suspect]
  2. FORTEO [Suspect]

REACTIONS (2)
  - DRUG DOSE OMISSION [None]
  - PELVIC FRACTURE [None]
